FAERS Safety Report 21350343 (Version 1)
Quarter: 2022Q3

REPORT INFORMATION
  Report Type: Spontaneous
  Country: US (occurrence: None)
  Receive Date: 20220918
  Receipt Date: 20220918
  Transmission Date: 20221026
  Serious: Yes (Other)
  Sender: FDA-Public Use
  Company Number: None

PATIENT
  Age: 11 Year
  Sex: Female
  Weight: 71.1 kg

DRUGS (4)
  1. CHLORAL HYDRATE [Suspect]
     Active Substance: CHLORAL HYDRATE
     Indication: Narcolepsy
     Dosage: FREQUENCY : DAILY;?
     Route: 048
     Dates: start: 20021204, end: 20030723
  2. PAXIL [Concomitant]
     Active Substance: PAROXETINE HYDROCHLORIDE
  3. PROVIGIL [Concomitant]
     Active Substance: MODAFINIL
  4. RITALIN [Concomitant]
     Active Substance: METHYLPHENIDATE HYDROCHLORIDE

REACTIONS (7)
  - Antinuclear antibody positive [None]
  - Double stranded DNA antibody positive [None]
  - Activated partial thromboplastin time prolonged [None]
  - Lupus-like syndrome [None]
  - Butterfly rash [None]
  - Oral lichen planus [None]
  - Weight decreased [None]

NARRATIVE: CASE EVENT DATE: 20030523
